APPROVED DRUG PRODUCT: VANTAS
Active Ingredient: HISTRELIN ACETATE
Strength: 50MG
Dosage Form/Route: IMPLANT;SUBCUTANEOUS
Application: N021732 | Product #001
Applicant: ENDO OPERATIONS LTD
Approved: Oct 12, 2004 | RLD: Yes | RS: No | Type: DISCN